FAERS Safety Report 24355508 (Version 1)
Quarter: 2024Q3

REPORT INFORMATION
  Report Type: Spontaneous
  Country: DE (occurrence: DE)
  Receive Date: 20240924
  Receipt Date: 20240924
  Transmission Date: 20241017
  Serious: Yes (Other)
  Sender: ROCHE
  Company Number: None

PATIENT
  Age: 1 Day
  Sex: Female
  Weight: 1.91 kg

DRUGS (11)
  1. HERCEPTIN [Suspect]
     Active Substance: TRASTUZUMAB
     Indication: Product used for unknown indication
     Dosage: 424 [MG/D (UP TO 336) ]/ WEEK 17+2 AND WEEK 20+2]
     Route: 064
     Dates: start: 20230105, end: 20230126
  2. PERJETA [Suspect]
     Active Substance: PERTUZUMAB
     Indication: Product used for unknown indication
     Dosage: 1060 [MG/D (UP TO 420) ]/ WEEK 17+2 AND WEEK 20+2
     Route: 064
     Dates: start: 20230105, end: 20230126
  3. EPIRUBICIN [Concomitant]
     Active Substance: EPIRUBICIN
     Indication: Product used for unknown indication
     Dosage: 143 [MG/D ]/ WEEK 28+3, 30+3, 32+3
     Route: 064
     Dates: start: 20230324, end: 20230420
  4. DOCETAXEL [Concomitant]
     Active Substance: DOCETAXEL\DOCETAXEL ANHYDROUS
     Indication: Product used for unknown indication
     Dosage: 349 [MG/D (BIS 117) ]/ WEEK 17+2, 20+2, 23+2
     Route: 064
     Dates: start: 20230105, end: 20230216
  5. GRANISETRON [Concomitant]
     Active Substance: GRANISETRON
     Indication: Product used for unknown indication
     Route: 064
  6. CARBOPLATIN [Concomitant]
     Active Substance: CARBOPLATIN
     Indication: Product used for unknown indication
     Dosage: 900 [MG/D ]
     Route: 064
     Dates: start: 20230105, end: 20230105
  7. FOLIC ACID [Concomitant]
     Active Substance: FOLIC ACID
     Indication: Product used for unknown indication
     Route: 064
  8. EMEND [Concomitant]
     Active Substance: APREPITANT
     Indication: Product used for unknown indication
     Route: 064
  9. CYCLOPHOSPHAMIDE [Concomitant]
     Active Substance: CYCLOPHOSPHAMIDE
     Indication: Product used for unknown indication
     Dosage: 940 [MG/D ]/ WEEK 28+3, 30+3, 32+3
     Route: 064
     Dates: start: 20230324, end: 20230420
  10. LEVOTHYROXINE SODIUM [Concomitant]
     Active Substance: LEVOTHYROXINE SODIUM
     Indication: Product used for unknown indication
     Dosage: 62.5 MICROGRAM/D
     Route: 064
  11. NEULASTA [Concomitant]
     Active Substance: PEGFILGRASTIM
     Indication: Product used for unknown indication
     Route: 064

REACTIONS (5)
  - Cardiac septal hypertrophy [Unknown]
  - Patent ductus arteriosus [Unknown]
  - Renal failure neonatal [Not Recovered/Not Resolved]
  - Atrial septal defect [Unknown]
  - Foetal exposure during pregnancy [Unknown]

NARRATIVE: CASE EVENT DATE: 20230501
